FAERS Safety Report 26087079 (Version 1)
Quarter: 2025Q4

REPORT INFORMATION
  Report Type: Spontaneous
  Country: US (occurrence: None)
  Receive Date: 20251124
  Receipt Date: 20251124
  Transmission Date: 20260118
  Serious: Yes (Disabling)
  Sender: FDA-CTU
  Company Number: None

PATIENT
  Age: 61 Year
  Sex: Female
  Weight: 101.25 kg

DRUGS (17)
  1. MOUNJARO [Suspect]
     Active Substance: TIRZEPATIDE
     Indication: Diabetes mellitus
     Dosage: OTHER QUANTITY : 1 INJECTION(S);?OTHER FREQUENCY : WEEKLY;?
     Route: 058
     Dates: start: 20251118
  2. MOUNJARO [Suspect]
     Active Substance: TIRZEPATIDE
     Indication: Obesity
  3. OXYCONTIN [Suspect]
     Active Substance: OXYCODONE HYDROCHLORIDE
  4. OXYCODONE [Suspect]
     Active Substance: OXYCODONE
  5. ROBAXIN [Suspect]
     Active Substance: METHOCARBAMOL
  6. LYRICA [Suspect]
     Active Substance: PREGABALIN
  7. LEVOTHYROXINE [Concomitant]
     Active Substance: LEVOTHYROXINE
  8. carvidilol [Concomitant]
  9. ZOLOFT [Concomitant]
     Active Substance: SERTRALINE HYDROCHLORIDE
  10. ZYRTEC [Concomitant]
     Active Substance: CETIRIZINE HYDROCHLORIDE
  11. love lidoderm patches [Concomitant]
  12. thumb immobilizing brace [Concomitant]
  13. rollator [Concomitant]
  14. senior women^s multivitamin [Concomitant]
  15. pre-postbiotic gummies [Concomitant]
  16. MELATONIN [Concomitant]
     Active Substance: MELATONIN
  17. FLONASE [Concomitant]
     Active Substance: FLUTICASONE PROPIONATE

REACTIONS (6)
  - Drug ineffective [None]
  - Inadequate analgesia [None]
  - Osteoarthritis [None]
  - Arthralgia [None]
  - Pain [None]
  - Bedridden [None]

NARRATIVE: CASE EVENT DATE: 20251119
